FAERS Safety Report 4417855-7 (Version None)
Quarter: 2004Q3

REPORT INFORMATION
  Report Type: 
  Country: None (occurrence: None)
  Receive Date: 20040803
  Receipt Date: 20040401
  Transmission Date: 20050211
  Serious: Yes (Hospitalization)
  Sender: FDA-Public Use
  Company Number: 2003GB01556

PATIENT
  Age: 69 Year
  Sex: Female

DRUGS (8)
  1. NOLVADEX [Suspect]
     Indication: BREAST CANCER
     Dosage: 1 MG QD PO
     Route: 048
     Dates: start: 19980312
  2. ARIMIDEX [Suspect]
     Indication: BREAST CANCER
     Dosage: 1 MG QD PO
     Route: 048
     Dates: start: 19980312
  3. QUININE [Concomitant]
  4. PICOSULPHATE [Concomitant]
  5. BENDROFLUAZIDE [Concomitant]
  6. KETOCONAZOLE [Concomitant]
  7. SIMVASTATIN [Concomitant]
  8. ASPIRIN [Concomitant]

REACTIONS (3)
  - ENDOMETRIAL HYPERPLASIA [None]
  - UTERINE POLYP [None]
  - VAGINAL HAEMORRHAGE [None]
